FAERS Safety Report 6139844-7 (Version None)
Quarter: 2009Q1

REPORT INFORMATION
  Report Type: 
  Country: None (occurrence: None)
  Receive Date: 20090324
  Receipt Date: 20090317
  Transmission Date: 20090719
  Serious: Yes (Hospitalization, Other)
  Sender: FDA-Public Use
  Company Number: 57824

PATIENT
  Age: 43 Year
  Sex: Male

DRUGS (2)
  1. FLUCONAZOLE [Suspect]
     Indication: ORAL CANDIDIASIS
  2. SIMVASTATIN [Concomitant]

REACTIONS (2)
  - BODY TEMPERATURE INCREASED [None]
  - RHABDOMYOLYSIS [None]
